FAERS Safety Report 8887597 (Version 1)
Quarter: 2012Q4

REPORT INFORMATION
  Report Type: Spontaneous
  Country: US (occurrence: None)
  Receive Date: 20121101
  Receipt Date: 20121101
  Transmission Date: 20130627
  Serious: Yes (Disabling)
  Sender: FDA-Public Use
  Company Number: None

PATIENT
  Age: 55 Year
  Sex: Female
  Weight: 90.72 kg

DRUGS (2)
  1. LIPITOR [Suspect]
     Indication: FIBROMYALGIA
     Dosage: 10mg 1 a day
     Dates: start: 20071228, end: 20080110
  2. NEXIUM [Concomitant]

REACTIONS (2)
  - Fibromyalgia [None]
  - Hypotonia [None]
